FAERS Safety Report 12378544 (Version 1)
Quarter: 2016Q2

REPORT INFORMATION
  Report Type: Report from Study
  Country: US (occurrence: US)
  Receive Date: 20160517
  Receipt Date: 20160517
  Transmission Date: 20160815
  Serious: Yes (Other)
  Sender: FDA-Public Use
  Company Number: US-JNJFOC-20160513923

PATIENT
  Sex: Female

DRUGS (2)
  1. IMBRUVICA [Suspect]
     Active Substance: IBRUTINIB
     Indication: CHRONIC LYMPHOCYTIC LEUKAEMIA
     Route: 048
     Dates: start: 201603
  2. IMBRUVICA [Suspect]
     Active Substance: IBRUTINIB
     Indication: CHRONIC LYMPHOCYTIC LEUKAEMIA
     Route: 048
     Dates: start: 20140324, end: 201603

REACTIONS (6)
  - Skin fissures [Not Recovered/Not Resolved]
  - Diarrhoea [Recovered/Resolved]
  - Foot operation [Unknown]
  - Rash [Unknown]
  - Arthritis [Not Recovered/Not Resolved]
  - Joint injection [Unknown]

NARRATIVE: CASE EVENT DATE: 2014
